FAERS Safety Report 7418528-9 (Version None)
Quarter: 2011Q2

REPORT INFORMATION
  Report Type: 
  Country: None (occurrence: None)
  Receive Date: 20110415
  Receipt Date: 20110412
  Transmission Date: 20111010
  Serious: Yes (Death, Hospitalization, Other)
  Sender: FDA-Public Use
  Company Number: US-CEPHALON-2011000100

PATIENT
  Sex: Male
  Weight: 156 kg

DRUGS (4)
  1. COUMADIN [Concomitant]
     Indication: HEART BLOCK CONGENITAL
  2. LISINOPRIL [Concomitant]
     Indication: HYPERTENSION
  3. TREANDA [Suspect]
     Indication: B-CELL LYMPHOMA
     Route: 041
     Dates: start: 20101116, end: 20101215
  4. RITUXAN [Suspect]
     Indication: B-CELL LYMPHOMA
     Dates: start: 20101116, end: 20101214

REACTIONS (2)
  - HERPES ZOSTER OPHTHALMIC [None]
  - HERPES ZOSTER DISSEMINATED [None]
